FAERS Safety Report 25497604 (Version 1)
Quarter: 2025Q3

REPORT INFORMATION
  Report Type: Report from Study
  Country: EU (occurrence: EU)
  Receive Date: 20250701
  Receipt Date: 20250701
  Transmission Date: 20251021
  Serious: Yes (Hospitalization, Other)
  Sender: AUROBINDO
  Company Number: EU-CINFAGATEW-2025001442

PATIENT
  Age: 78 Year
  Sex: Male

DRUGS (2)
  1. METFORMIN [Suspect]
     Active Substance: METFORMIN HYDROCHLORIDE
     Indication: Type 2 diabetes mellitus
     Route: 065
  2. NOREPINEPHRINE [Concomitant]
     Active Substance: NOREPINEPHRINE
     Indication: Product used for unknown indication
     Route: 065

REACTIONS (2)
  - Acute kidney injury [Unknown]
  - Lactic acidosis [Unknown]
